FAERS Safety Report 5759321-2 (Version None)
Quarter: 2008Q2

REPORT INFORMATION
  Report Type: 
  Country: None (occurrence: None)
  Receive Date: 20080530
  Receipt Date: 20080519
  Transmission Date: 20081010
  Serious: Yes (Other)
  Sender: FDA-Public Use
  Company Number: 2008-01762

PATIENT
  Age: 47 Year
  Sex: Male

DRUGS (3)
  1. VELCADE [Suspect]
     Indication: MULTIPLE MYELOMA
     Dosage: INTRAVENOUS
     Route: 042
  2. ADRIABLASTINA(DOXORUBICIN HYDROCHLORIDE) [Suspect]
     Indication: MULTIPLE MYELOMA
  3. DEXAMETHASONE TAB [Concomitant]

REACTIONS (1)
  - ATRIAL FIBRILLATION [None]
